FAERS Safety Report 10737253 (Version 1)
Quarter: 2015Q1

REPORT INFORMATION
  Report Type: Spontaneous
  Country: DK (occurrence: DK)
  Receive Date: 20150126
  Receipt Date: 20150126
  Transmission Date: 20150721
  Serious: Yes (Life-Threatening)
  Sender: FDA-Public Use
  Company Number: DK-ASTRAZENECA-2015SE05732

PATIENT
  Age: 97 Year
  Sex: Female

DRUGS (5)
  1. HJERTEMAGNYL [Concomitant]
     Active Substance: ASPIRIN\MAGNESIUM OXIDE
  2. BUPIVACAIN [Suspect]
     Active Substance: BUPIVACAINE
     Indication: FRACTURE PAIN
     Route: 058
     Dates: start: 20141215, end: 20141215
  3. ENALAPRIL [Concomitant]
     Active Substance: ENALAPRIL
     Indication: HYPERTENSION
  4. METOPROLOL [Concomitant]
     Active Substance: METOPROLOL
     Indication: HYPERTENSION
  5. PANTOPRAZOLE [Concomitant]
     Active Substance: PANTOPRAZOLE SODIUM

REACTIONS (8)
  - Vertigo [Recovered/Resolved]
  - Nausea [Recovered/Resolved]
  - Hypotension [Recovered/Resolved]
  - Presyncope [Recovered/Resolved]
  - Bradycardia [Recovered/Resolved]
  - Malaise [Recovered/Resolved]
  - Depressed level of consciousness [Recovered/Resolved]
  - Sinus arrest [Unknown]

NARRATIVE: CASE EVENT DATE: 20141215
